FAERS Safety Report 23637748 (Version 3)
Quarter: 2024Q4

REPORT INFORMATION
  Report Type: Spontaneous
  Country: US (occurrence: US)
  Receive Date: 20240315
  Receipt Date: 20241001
  Transmission Date: 20250115
  Serious: No
  Sender: SANOFI AVENTIS
  Company Number: US-SA-SAC20240315000325

PATIENT
  Age: 72 Year
  Sex: Female

DRUGS (1)
  1. DUPIXENT [Suspect]
     Active Substance: DUPILUMAB
     Indication: Dermatitis atopic
     Dosage: 300 MG, QOW
     Route: 058

REACTIONS (6)
  - Blood alkaline phosphatase increased [Unknown]
  - Fatigue [Recovered/Resolved]
  - Muscle disorder [Unknown]
  - Bursitis [Unknown]
  - Hidradenitis [Unknown]
  - Pruritus [Unknown]
